FAERS Safety Report 9664879 (Version 2)
Quarter: 2013Q4

REPORT INFORMATION
  Report Type: Spontaneous
  Country: DK (occurrence: DK)
  Receive Date: 20131101
  Receipt Date: 20131108
  Transmission Date: 20140711
  Serious: Yes (Life-Threatening, Hospitalization)
  Sender: FDA-Public Use
  Company Number: DK-WATSON-2013-20007

PATIENT
  Age: 52 Year
  Sex: Male
  Weight: 87 kg

DRUGS (5)
  1. RAMIPRIL ACTAVIS [Suspect]
     Indication: CARDIAC FAILURE
     Dosage: 2.5 MG, BID
     Route: 048
     Dates: start: 20100101
  2. BURANA [Interacting]
     Indication: ARTHRITIS INFECTIVE
     Dosage: 400 MG, TID; DOSE AS REQUIRED
     Route: 048
     Dates: start: 20130828, end: 20130905
  3. HEXAMYCIN [Suspect]
     Indication: ARTHRITIS INFECTIVE
     Dosage: 440 MG, DAILY; STRENGTH 40 M/ML; SINGLE DOSE
     Route: 042
     Dates: start: 20130828
  4. CEFUROXIM                          /00454602/ [Concomitant]
     Indication: ARTHRITIS INFECTIVE
     Dosage: UNK
     Route: 065
     Dates: start: 20130828, end: 20130905
  5. CARVEDILOL [Concomitant]
     Indication: CARDIAC FAILURE
     Dosage: UNK
     Route: 065
     Dates: start: 20100101

REACTIONS (2)
  - Renal failure acute [Recovering/Resolving]
  - Drug interaction [Recovering/Resolving]
